FAERS Safety Report 9030561 (Version 1)
Quarter: 2013Q1

REPORT INFORMATION
  Report Type: Spontaneous
  Country: FR (occurrence: FR)
  Receive Date: 20130122
  Receipt Date: 20130122
  Transmission Date: 20140127
  Serious: Yes (Hospitalization)
  Sender: FDA-Public Use
  Company Number: FR-TEVA-380103ISR

PATIENT
  Age: 58 Year
  Sex: Male

DRUGS (1)
  1. OXALIPLATINE [Suspect]
     Dates: start: 20121023

REACTIONS (1)
  - Infusion related reaction [Recovered/Resolved]
